FAERS Safety Report 4403957-8 (Version None)
Quarter: 2004Q3

REPORT INFORMATION
  Report Type: 
  Country: None (occurrence: None)
  Receive Date: 20040719
  Receipt Date: 20040707
  Transmission Date: 20050211
  Serious: Yes (Other)
  Sender: FDA-Public Use
  Company Number: FR-JNJFOC-20040502117

PATIENT
  Age: 55 Year
  Sex: Male

DRUGS (4)
  1. RISPERDAL [Suspect]
     Indication: CONFUSIONAL STATE
     Dosage: ORAL
     Route: 048
     Dates: start: 20010801, end: 20020401
  2. DEPAKINE 9VALPROATE SODIUM) [Concomitant]
  3. SINTROM (ACETYLSALICYLIC ACID) [Concomitant]
  4. MAXEPA (MAXEPA) [Concomitant]

REACTIONS (9)
  - ANGIOPATHY [None]
  - ATHEROSCLEROSIS [None]
  - ERECTILE DYSFUNCTION [None]
  - GLUCOSE TOLERANCE IMPAIRED [None]
  - GYNAECOMASTIA [None]
  - INSULIN RESISTANCE [None]
  - METABOLIC SYNDROME [None]
  - URINARY INCONTINENCE [None]
  - WEIGHT INCREASED [None]
